FAERS Safety Report 6181860-3 (Version None)
Quarter: 2009Q2

REPORT INFORMATION
  Report Type: 
  Country: None (occurrence: None)
  Receive Date: 20090504
  Receipt Date: 20090415
  Transmission Date: 20091009
  Serious: Yes (Other)
  Sender: FDA-Public Use
  Company Number: PAR_02959_2009

PATIENT
  Sex: Female

DRUGS (10)
  1. IBUPROFEN [Suspect]
     Indication: DRUG USE FOR UNKNOWN INDICATION
     Dosage: (1800 MG), (600 MG)
     Dates: start: 20090203, end: 20090203
  2. IBUPROFEN [Suspect]
     Indication: DRUG USE FOR UNKNOWN INDICATION
     Dosage: (1800 MG), (600 MG)
     Dates: start: 20090204
  3. RIVAROXABAN [Suspect]
     Indication: KNEE ARTHROPLASTY
     Dosage: (10 MG)
     Dates: start: 20090203
  4. RIVAROXABAN [Suspect]
     Indication: THROMBOSIS PROPHYLAXIS
     Dosage: (10 MG)
     Dates: start: 20090203
  5. CEFAZOLIN [Concomitant]
  6. TUTOFUSIN [Concomitant]
  7. LEVOTHYROXINE SODIUM [Concomitant]
  8. RAMIPRIL [Concomitant]
  9. TRIAMTEREN [Concomitant]
  10. PANTOZOL /01263202/ [Concomitant]

REACTIONS (1)
  - HAEMATOMA [None]
